FAERS Safety Report 18929348 (Version 2)
Quarter: 2025Q2

REPORT INFORMATION
  Report Type: Spontaneous
  Country: FR (occurrence: FR)
  Receive Date: 20210223
  Receipt Date: 20250411
  Transmission Date: 20250716
  Serious: Yes (Hospitalization, Other)
  Sender: TEVA
  Company Number: None

PATIENT
  Age: 103 Year
  Sex: Female

DRUGS (11)
  1. FURADANTIN [Suspect]
     Active Substance: NITROFURANTOIN
     Indication: Product administration error
     Route: 048
     Dates: start: 20201217, end: 20201217
  2. BISOPROLOL [Suspect]
     Active Substance: BISOPROLOL
     Indication: Product administration error
     Route: 048
     Dates: start: 20201217, end: 20201217
  3. FERROUS FUMARATE [Suspect]
     Active Substance: FERROUS FUMARATE
     Indication: Product administration error
     Route: 048
     Dates: start: 20201217, end: 20201217
  4. POLYETHYLENE GLYCOLS [Suspect]
     Active Substance: POLYETHYLENE GLYCOLS
     Indication: Product administration error
     Route: 048
     Dates: start: 20201217, end: 20201217
  5. FOLIC ACID [Suspect]
     Active Substance: FOLIC ACID
     Indication: Product administration error
     Route: 048
     Dates: start: 20201217, end: 20201217
  6. RAMIPRIL [Suspect]
     Active Substance: RAMIPRIL
     Indication: Product administration error
     Route: 048
     Dates: start: 20201217, end: 20201217
  7. POTASSIUM CHLORIDE [Suspect]
     Active Substance: POTASSIUM CHLORIDE
     Indication: Product administration error
     Route: 048
     Dates: start: 20201217, end: 20201217
  8. VIMPAT [Suspect]
     Active Substance: LACOSAMIDE
     Indication: Product administration error
     Route: 048
     Dates: start: 20201217, end: 20201217
  9. DOLIPRANE [Suspect]
     Active Substance: ACETAMINOPHEN
     Indication: Product administration error
     Route: 048
     Dates: start: 20201217, end: 20201217
  10. CHOLECALCIFEROL [Suspect]
     Active Substance: CHOLECALCIFEROL
     Indication: Product administration error
     Route: 048
     Dates: start: 20201217, end: 20201217
  11. BUTYLSCOPOLAMINE BROMIDE [Suspect]
     Active Substance: BUTYLSCOPOLAMINE BROMIDE
     Indication: Product used for unknown indication
     Route: 048
     Dates: start: 20201217, end: 20201217

REACTIONS (7)
  - Shock [Recovered/Resolved]
  - Loss of consciousness [Recovered/Resolved]
  - Malaise [Recovered/Resolved]
  - Bradycardia [Recovered/Resolved]
  - Product administration error [Recovered/Resolved]
  - Hypotension [Recovered/Resolved]
  - Wrong patient received product [Recovered/Resolved]

NARRATIVE: CASE EVENT DATE: 20201217
